FAERS Safety Report 8401343 (Version 5)
Quarter: 2012Q4

REPORT INFORMATION
  Report Type: Report from Study
  Country: DE (occurrence: DE)
  Receive Date: 20120210
  Receipt Date: 20120924
  Transmission Date: 20130627
  Serious: Yes (Hospitalization)
  Sender: FDA-Public Use
  Company Number: DE-ABBOTT-12P-062-0893040-00

PATIENT
  Age: 43 None
  Sex: Female
  Weight: 76 kg

DRUGS (5)
  1. HUMIRA [Suspect]
     Indication: COLITIS ULCERATIVE
     Route: 058
     Dates: start: 20091221, end: 20111220
  2. CIPRALEX [Concomitant]
     Indication: DEPRESSION
     Dates: start: 20070101
  3. AZATHIOPRIN [Concomitant]
     Indication: COLITIS ULCERATIVE
     Dates: start: 20070125
  4. AZULFIDINE [Concomitant]
     Indication: COLITIS ULCERATIVE
     Dates: start: 20070603
  5. DECORTIN [Concomitant]
     Indication: COLITIS ULCERATIVE
     Dates: start: 20081203

REACTIONS (1)
  - Multiple sclerosis [Not Recovered/Not Resolved]
